FAERS Safety Report 24317787 (Version 1)
Quarter: 2024Q3

REPORT INFORMATION
  Report Type: Spontaneous
  Country: US (occurrence: US)
  Receive Date: 20240913
  Receipt Date: 20240913
  Transmission Date: 20241016
  Serious: Yes (Hospitalization)
  Sender: SK LIFE SCIENCE
  Company Number: US-SK LIFE SCIENCE, INC.-SKPVG-2024-002069

PATIENT

DRUGS (2)
  1. XCOPRI [Suspect]
     Active Substance: CENOBAMATE
     Indication: Seizure
     Dosage: UNK
     Route: 048
  2. XCOPRI [Suspect]
     Active Substance: CENOBAMATE
     Dosage: 150 MG AND 200 MG TABLET ONE EACH NIGHTLY
     Route: 048
     Dates: start: 2023

REACTIONS (9)
  - Hyponatraemia [Unknown]
  - Seizure [Unknown]
  - Incoherent [Unknown]
  - Slow speech [Unknown]
  - Fear [Unknown]
  - Change in seizure presentation [Unknown]
  - Illness [Unknown]
  - Nausea [Unknown]
  - Weight decreased [Unknown]
